FAERS Safety Report 6173149-3 (Version None)
Quarter: 2009Q2

REPORT INFORMATION
  Report Type: 
  Country: None (occurrence: None)
  Receive Date: 20090430
  Receipt Date: 20090422
  Transmission Date: 20091009
  Serious: Yes (Life-Threatening)
  Sender: FDA-Public Use
  Company Number: GB-PFIZER INC-2009201618

PATIENT

DRUGS (3)
  1. AMLODIPINE BESYLATE [Suspect]
     Indication: HYPERTENSION
     Dosage: 5 MG, 1X/DAY
     Route: 048
     Dates: start: 20090201, end: 20090415
  2. LISINOPRIL AND HYDROCHLOROTHIAZIDE [Concomitant]
  3. WARFARIN SODIUM [Concomitant]

REACTIONS (3)
  - ACUTE LEFT VENTRICULAR FAILURE [None]
  - DYSPNOEA EXERTIONAL [None]
  - OEDEMA PERIPHERAL [None]
